FAERS Safety Report 4900796-6 (Version None)
Quarter: 2006Q1

REPORT INFORMATION
  Report Type: 
  Country: None (occurrence: None)
  Receive Date: 20060201
  Receipt Date: 20050221
  Transmission Date: 20060701
  Serious: Yes (Other)
  Sender: FDA-Public Use
  Company Number: BR-2005-029146

PATIENT
  Sex: Female

DRUGS (1)
  1. YASMIN [Suspect]
     Dosage: 1 TAB(S), 1 DOSE, ORAL
     Route: 048

REACTIONS (3)
  - GENERALISED ERYTHEMA [None]
  - LARYNGEAL OEDEMA [None]
  - URTICARIA [None]
